FAERS Safety Report 8403349-0 (Version None)
Quarter: 2012Q2

REPORT INFORMATION
  Report Type: 
  Country: None (occurrence: None)
  Receive Date: 20120601
  Receipt Date: 20120530
  Transmission Date: 20120825
  Serious: Yes (Hospitalization, Other)
  Sender: FDA-Public Use
  Company Number: BR-BAYER-2012-028086

PATIENT
  Age: 50 Year
  Sex: Female

DRUGS (14)
  1. BETASERON [Suspect]
     Indication: MULTIPLE SCLEROSIS
     Dosage: UNK
     Dates: start: 20060101
  2. AMIODARONE HYDROCHLORIDE [Concomitant]
     Indication: CARDIAC DISORDER
     Dosage: 100 MG, QD
     Route: 048
     Dates: start: 20090101
  3. OMEPRAZOLE [Concomitant]
     Indication: ABDOMINAL PAIN UPPER
     Dosage: 2 DF, QD
     Route: 048
     Dates: start: 20020101
  4. UNKNOWN [Concomitant]
     Indication: MULTIPLE SCLEROSIS
     Dosage: 1 DF, QD
     Route: 048
     Dates: start: 20110601
  5. SIMVASTATIN [Concomitant]
     Indication: HYPERCHOLESTEROLAEMIA
     Dosage: 20 MG, QD
     Route: 048
     Dates: start: 20080101
  6. BISOPROLOL FUMARATE [Concomitant]
     Indication: ANGINA PECTORIS
     Dosage: 2.5 MG, QD
     Route: 048
     Dates: start: 20090101
  7. VITERGAN ZN [Concomitant]
     Indication: PRODUCT USED FOR UNKNOWN INDICATION
     Dosage: 1 DF, QD
     Route: 048
     Dates: start: 20100101
  8. ACETYLSALICYLIC ACID SRT [Concomitant]
     Indication: ANTICOAGULANT THERAPY
     Dosage: 2 DF, QD
     Route: 048
     Dates: start: 20090101
  9. BETASERON [Suspect]
     Dosage: 8 MIU, QOD
     Route: 058
     Dates: start: 20080601
  10. EFEZ [Concomitant]
     Indication: MEDICAL DIET
     Dosage: UNK
     Route: 048
     Dates: start: 20111101
  11. CITONEURIN [Concomitant]
     Indication: HYPOVITAMINOSIS
     Dosage: 1 DF, Q1MON
     Route: 042
     Dates: start: 20110101
  12. PANTOPRAZOLE [Concomitant]
     Indication: ABDOMINAL PAIN UPPER
     Dosage: UNKNOWN
  13. HYDROXYCHLOROQUINE SULFATE [Concomitant]
     Indication: ARTHRITIS
     Dosage: 400 MG, QD
     Route: 048
     Dates: start: 20080101
  14. ALPRAZOLAM [Concomitant]
     Indication: INSOMNIA
     Dosage: 3 MG, QD
     Route: 048
     Dates: start: 20070101

REACTIONS (17)
  - MUSCULAR WEAKNESS [None]
  - ANOREXIA NERVOSA [None]
  - DEPRESSION [None]
  - MYOCARDIAL INFARCTION [None]
  - HEADACHE [None]
  - BLOOD PRESSURE ABNORMAL [None]
  - ABNORMAL LOSS OF WEIGHT [None]
  - ANGINA PECTORIS [None]
  - FATIGUE [None]
  - BACTERIAL INFECTION [None]
  - MULTIPLE SCLEROSIS RELAPSE [None]
  - HYPOAESTHESIA [None]
  - GASTRIC ULCER [None]
  - ABDOMINAL PAIN UPPER [None]
  - BALANCE DISORDER [None]
  - CENTRAL NERVOUS SYSTEM LESION [None]
  - MENOPAUSE [None]
